FAERS Safety Report 8386837-5 (Version None)
Quarter: 2012Q2

REPORT INFORMATION
  Report Type: 
  Country: None (occurrence: None)
  Receive Date: 20120525
  Receipt Date: 20120523
  Transmission Date: 20120825
  Serious: Yes (Hospitalization, Other)
  Sender: FDA-Public Use
  Company Number: US-PFIZER INC-2012112669

PATIENT
  Sex: Female
  Weight: 65.76 kg

DRUGS (1)
  1. ADVIL [Suspect]
     Indication: MYALGIA
     Dosage: 240 MG, AS NEEDED
     Route: 048

REACTIONS (3)
  - POOR QUALITY DRUG ADMINISTERED [None]
  - BLADDER DISORDER [None]
  - DIVERTICULITIS [None]
